FAERS Safety Report 17092213 (Version 1)
Quarter: 2019Q4

REPORT INFORMATION
  Report Type: Report from Study
  Country: CA (occurrence: CA)
  Receive Date: 20191129
  Receipt Date: 20191129
  Transmission Date: 20200122
  Serious: Yes (Death, Other)
  Sender: FDA-Public Use
  Company Number: CA-PFIZER INC-2019513297

PATIENT
  Age: 66 Year
  Sex: Female
  Weight: 56 kg

DRUGS (22)
  1. ELAVIL [Concomitant]
     Active Substance: AMITRIPTYLINE HYDROCHLORIDE
     Indication: FACIAL PAIN
  2. PREDNISONE. [Concomitant]
     Active Substance: PREDNISONE
     Dosage: 50 MG, UNK
  3. VITAMIN B12 [Concomitant]
     Active Substance: CYANOCOBALAMIN
     Dosage: 1000.0 MILLIEQUIVALENTS
  4. COVERSYL PLUS [INDAPAMIDE;PERINDOPRIL ARGININE] [Concomitant]
     Active Substance: INDAPAMIDE\PERINDOPRIL ARGININE
     Indication: CARDIAC DISORDER
     Dosage: 82.5 MG, UNK
  5. ERGOCALCIFEROL. [Concomitant]
     Active Substance: ERGOCALCIFEROL
     Dosage: 1000 IU, UNK
  6. WARFARIN [Concomitant]
     Active Substance: WARFARIN
     Indication: CARDIAC DISORDER
     Dosage: 2.5 MG, UNK
  7. DEXAMETHASONE. [Concomitant]
     Active Substance: DEXAMETHASONE
     Indication: PROPHYLAXIS
     Dosage: 2 MG, UNK
  8. ERGOCALCIFEROL. [Concomitant]
     Active Substance: ERGOCALCIFEROL
     Dosage: 600 MG, UNK
  9. POVIDONE-IODINE. [Concomitant]
     Active Substance: POVIDONE-IODINE
     Dosage: 100 IU, UNK
  10. SLOW K [Concomitant]
     Active Substance: POTASSIUM CHLORIDE
     Dosage: 600 MG, UNK
  11. AROMASIN [Suspect]
     Active Substance: EXEMESTANE
     Dosage: 25 MG, UNK
  12. ELAVIL [Concomitant]
     Active Substance: AMITRIPTYLINE HYDROCHLORIDE
     Indication: MIGRAINE
     Dosage: 25 MG, UNK
  13. DEXAMETHASONE. [Concomitant]
     Active Substance: DEXAMETHASONE
     Indication: FATIGUE
     Dosage: 5 MG, UNK
  14. ERGOCALCIFEROL. [Concomitant]
     Active Substance: ERGOCALCIFEROL
     Dosage: 800 MG, UNK
  15. NIFEDIPINE XL [Concomitant]
     Active Substance: NIFEDIPINE
     Indication: HYPERTENSION
     Dosage: 30 MG, UNK
  16. PREDNISONE. [Concomitant]
     Active Substance: PREDNISONE
     Indication: GOUT
     Dosage: 20 MG, UNK
  17. PREDNISONE. [Concomitant]
     Active Substance: PREDNISONE
     Indication: ADRENAL INSUFFICIENCY
     Dosage: 50 MG, UNK
  18. VENTOLINE [SALBUTAMOL SULFATE] [Concomitant]
     Active Substance: ALBUTEROL SULFATE
     Indication: DYSPNOEA
     Dosage: 2 DF, UNK
     Route: 055
  19. AFINITOR [Suspect]
     Active Substance: EVEROLIMUS
     Indication: BREAST CANCER
     Dosage: 10 MG, 1X/DAY
     Route: 048
  20. RABEPRAZOLE [Concomitant]
     Active Substance: RABEPRAZOLE
     Indication: GASTROOESOPHAGEAL REFLUX DISEASE
     Dosage: 20 MG, UNK
  21. RABEPRAZOLE [Concomitant]
     Active Substance: RABEPRAZOLE
     Dosage: 8 MG, UNK
  22. SLOW K [Concomitant]
     Active Substance: POTASSIUM CHLORIDE
     Indication: HYPOKALAEMIA
     Dosage: 20 MG, UNK

REACTIONS (25)
  - Oxygen saturation decreased [Fatal]
  - Cough [Fatal]
  - Restlessness [Fatal]
  - Sepsis [Fatal]
  - Septic shock [Fatal]
  - Urosepsis [Fatal]
  - Renal impairment [Fatal]
  - Type 2 diabetes mellitus [Fatal]
  - Tachycardia [Fatal]
  - Arthralgia [Fatal]
  - Nail disorder [Fatal]
  - Thrombocytopenia [Fatal]
  - Headache [Fatal]
  - Hyperglycaemia [Fatal]
  - Sinusitis [Fatal]
  - Face oedema [Fatal]
  - Dry skin [Fatal]
  - Epistaxis [Fatal]
  - Pelvic pain [Fatal]
  - Stomatitis [Fatal]
  - Bronchospasm [Fatal]
  - Cardiac failure [Fatal]
  - Hypotension [Fatal]
  - Dyspnoea [Fatal]
  - Rash [Fatal]
